FAERS Safety Report 5658503-8 (Version None)
Quarter: 2008Q1

REPORT INFORMATION
  Report Type: 
  Country: None (occurrence: None)
  Receive Date: 20080310
  Receipt Date: 20070222
  Transmission Date: 20080703
  Serious: No
  Sender: FDA-Public Use
  Company Number: US-BAYER-200710585BCC

PATIENT
  Age: 81 Year
  Sex: Female
  Weight: 95 kg

DRUGS (5)
  1. ALEVE [Suspect]
     Indication: ARTHRITIS
     Dosage: TOTAL DAILY DOSE: 220 MG  UNIT DOSE: 220 MG
     Route: 048
  2. BENADRYL [Concomitant]
  3. LIPITOR [Concomitant]
  4. GLUCOPHAGE [Concomitant]
  5. CENTRUM VITAMIN [Concomitant]

REACTIONS (5)
  - CHILLS [None]
  - ERYTHEMA [None]
  - EYE SWELLING [None]
  - FEELING HOT [None]
  - HYPERSENSITIVITY [None]
